FAERS Safety Report 7020336-8 (Version None)
Quarter: 2010Q3

REPORT INFORMATION
  Report Type: 
  Country: None (occurrence: None)
  Receive Date: 20100929
  Receipt Date: 20100920
  Transmission Date: 20110219
  Serious: Yes (Other)
  Sender: FDA-Public Use
  Company Number: US-JNJFOC-20100906813

PATIENT
  Age: 79 Year
  Sex: Female
  Weight: 90.72 kg

DRUGS (5)
  1. IMODIUM A-D [Suspect]
     Route: 048
  2. IMODIUM A-D [Suspect]
     Indication: DIARRHOEA
     Dosage: 1 CAPLET, 2 DIFFERENT TIMES THAT DAY
     Route: 048
  3. QUINAPRIL [Concomitant]
     Indication: HYPERTENSION
     Route: 065
  4. TRICOR [Concomitant]
     Indication: HYPERTENSION
     Route: 065
  5. TOPROL-XL [Concomitant]
     Indication: HYPERTENSION
     Route: 065

REACTIONS (4)
  - HAEMATOCHEZIA [None]
  - INFREQUENT BOWEL MOVEMENTS [None]
  - MUCOUS STOOLS [None]
  - SENSORY DISTURBANCE [None]
